FAERS Safety Report 8727398 (Version 11)
Quarter: 2013Q3

REPORT INFORMATION
  Report Type: Report from Study
  Country: GB (occurrence: GB)
  Receive Date: 20120816
  Receipt Date: 20130812
  Transmission Date: 20140515
  Serious: Yes (Death, Life-Threatening, Hospitalization, Other)
  Sender: FDA-Public Use
  Company Number: GB-TEVA-351866USA

PATIENT
  Age: 81 Year
  Sex: Female
  Weight: 72.6 kg

DRUGS (17)
  1. BENDAMUSTINE [Suspect]
     Indication: CHRONIC LYMPHOCYTIC LEUKAEMIA
     Dosage: GIVEN IN EVERY 2 MONTHS DURATION
     Route: 041
     Dates: start: 20120509, end: 20120807
  2. OFATUMUMAB [Suspect]
     Indication: CHRONIC LYMPHOCYTIC LEUKAEMIA
     Dosage: ONCE IN 4 WEEKS
     Route: 041
     Dates: start: 20120509, end: 20120807
  3. OFATUMUMAB [Suspect]
     Dosage: UNKNOWN/D
     Route: 041
     Dates: start: 20120704, end: 20120807
  4. FUROSEMIDE [Concomitant]
     Indication: FLUID RETENTION
     Route: 048
     Dates: start: 20130422
  5. AMILORIDE [Concomitant]
     Indication: FLUID RETENTION
     Route: 048
     Dates: start: 20120530, end: 20120906
  6. LORATADINE [Concomitant]
     Indication: RASH
     Dosage: 10 MILLIGRAM DAILY;
     Route: 048
     Dates: start: 20120627
  7. OMEPRAZOLE [Concomitant]
     Dosage: 20 MILLIGRAM DAILY;
     Route: 048
     Dates: start: 20120627, end: 20121119
  8. FLUCONAZOLE [Concomitant]
     Indication: CHRONIC LYMPHOCYTIC LEUKAEMIA
     Route: 048
     Dates: start: 20120530, end: 20120627
  9. CETIRIZINE [Concomitant]
     Indication: RASH
     Dosage: 10 MILLIGRAM DAILY;
     Route: 048
     Dates: start: 20120801, end: 20120813
  10. PREDNISOLONE [Concomitant]
     Indication: CHRONIC LYMPHOCYTIC LEUKAEMIA
     Route: 048
     Dates: start: 20120627, end: 20120906
  11. ALLOPURINOL [Concomitant]
     Indication: CHRONIC LYMPHOCYTIC LEUKAEMIA
     Route: 048
     Dates: start: 20120704
  12. AZITHROMYCIN [Concomitant]
     Dosage: 500 MILLIGRAM DAILY;
     Route: 048
     Dates: start: 20120801, end: 20120806
  13. PARACETAMOL [Concomitant]
  14. CHLORPHENIRAMINE [Concomitant]
  15. METOCLOPRAMIDE [Concomitant]
     Indication: CHRONIC LYMPHOCYTIC LEUKAEMIA
     Route: 048
     Dates: start: 20120704, end: 20120807
  16. ACICLOVIR [Concomitant]
  17. G-CSF [Concomitant]

REACTIONS (9)
  - Psoriasis [Not Recovered/Not Resolved]
  - Encephalopathy [Fatal]
  - Encephalitis [Fatal]
  - Confusional state [Not Recovered/Not Resolved]
  - Pneumonia [Fatal]
  - Lower respiratory tract infection [Fatal]
  - Oedema peripheral [Not Recovered/Not Resolved]
  - Pseudomonas infection [Fatal]
  - Staphylococcal skin infection [Fatal]
